FAERS Safety Report 7086539-1 (Version None)
Quarter: 2010Q4

REPORT INFORMATION
  Report Type: 
  Country: None (occurrence: None)
  Receive Date: 20101105
  Receipt Date: 20101026
  Transmission Date: 20110411
  Serious: Yes (Life-Threatening)
  Sender: FDA-Public Use
  Company Number: DZ-SANOFI-AVENTIS-2010SA065161

PATIENT
  Age: 6 Year
  Sex: Female

DRUGS (2)
  1. DESMOPRESSIN ACETATE [Suspect]
     Indication: ENURESIS
     Route: 048
     Dates: start: 20100816, end: 20100819
  2. DESMOPRESSIN ACETATE [Suspect]
     Route: 048
     Dates: start: 20100821, end: 20100821

REACTIONS (2)
  - FACE OEDEMA [None]
  - URTICARIA [None]
